FAERS Safety Report 4771521-7 (Version None)
Quarter: 2005Q3

REPORT INFORMATION
  Report Type: 
  Country: None (occurrence: None)
  Receive Date: 20050914
  Receipt Date: 20050914
  Transmission Date: 20060218
  Serious: Yes (Hospitalization)
  Sender: FDA-Public Use
  Company Number: None

PATIENT
  Age: 66 Year
  Sex: Male
  Weight: 113.3993 kg

DRUGS (10)
  1. REVLIMID [Suspect]
     Indication: MULTIPLE MYELOMA
     Dosage: 25 MG PO
     Route: 048
     Dates: start: 20050429, end: 20050913
  2. DECADRON SRC [Suspect]
     Indication: MULTIPLE MYELOMA
     Dosage: 20 MG PO
     Route: 048
     Dates: start: 20050429, end: 20050913
  3. BIAXIN [Suspect]
     Indication: MULTIPLE MYELOMA
     Dosage: 250 MG BID PO
     Route: 048
     Dates: start: 20050429, end: 20050913
  4. AREDIA [Concomitant]
  5. PREVAID [Concomitant]
  6. SYNTHROID [Concomitant]
  7. TOPROL-XL [Concomitant]
  8. LASIX [Concomitant]
  9. ALLOPURINOL [Concomitant]
  10. BACTRIM [Concomitant]

REACTIONS (2)
  - FEBRILE NEUTROPENIA [None]
  - WHITE BLOOD CELL COUNT DECREASED [None]
